FAERS Safety Report 8318012-4 (Version None)
Quarter: 2012Q2

REPORT INFORMATION
  Report Type: 
  Country: None (occurrence: None)
  Receive Date: 20120427
  Receipt Date: 20120419
  Transmission Date: 20120825
  Serious: No
  Sender: FDA-Public Use
  Company Number: US-ROXANE LABORATORIES, INC.-2012-RO-01095RO

PATIENT
  Sex: Female

DRUGS (2)
  1. ROPINIROLE [Suspect]
     Indication: PARKINSON'S DISEASE
     Dosage: 4 MG
     Route: 048
  2. ROPINIROLE [Suspect]
     Dosage: 4 MG
     Route: 048

REACTIONS (5)
  - DECREASED APPETITE [None]
  - PYREXIA [None]
  - SOMNOLENCE [None]
  - MALAISE [None]
  - ACTIVITIES OF DAILY LIVING IMPAIRED [None]
